FAERS Safety Report 6636925-6 (Version None)
Quarter: 2010Q1

REPORT INFORMATION
  Report Type: 
  Country: None (occurrence: None)
  Receive Date: 20100316
  Receipt Date: 20100305
  Transmission Date: 20100710
  Serious: Yes (Hospitalization)
  Sender: FDA-Public Use
  Company Number: US-BRISTOL-MYERS SQUIBB COMPANY-15005747

PATIENT
  Age: 84 Year
  Sex: Female

DRUGS (11)
  1. ONGLYZA [Suspect]
     Indication: TYPE 2 DIABETES MELLITUS
     Dosage: DOSAGE: APPROXIMATELY 1 MONTH.
     Route: 048
     Dates: start: 20100121, end: 20100227
  2. COZAAR [Concomitant]
  3. DARVON-N [Concomitant]
  4. ZOLOFT [Concomitant]
  5. METFORMIN HYDROCHLORIDE [Concomitant]
  6. LANTUS [Concomitant]
  7. LOPID [Concomitant]
  8. BABY ASPIRIN [Concomitant]
  9. VITAMIN B-12 [Concomitant]
  10. LEVOTHYROXINE SODIUM [Concomitant]
  11. TYLENOL-500 [Concomitant]

REACTIONS (1)
  - PANCREATITIS [None]
